FAERS Safety Report 8549577-5 (Version None)
Quarter: 2012Q3

REPORT INFORMATION
  Report Type: 
  Country: None (occurrence: None)
  Receive Date: 20120730
  Receipt Date: 20120720
  Transmission Date: 20120928
  Serious: Yes (Hospitalization)
  Sender: FDA-Public Use
  Company Number: JP-VERTEX PHARMACEUTICALS INC.-AE-2012-007784

PATIENT
  Age: 22 Year
  Sex: Female

DRUGS (8)
  1. TELAVIC (TELAPREVIR) [Suspect]
     Indication: HEPATITIS C
     Route: 048
     Dates: start: 20120403
  2. PEGINTERFERON ALFA-2B [Concomitant]
     Route: 058
  3. ZANTAC [Concomitant]
     Route: 048
     Dates: start: 20120403
  4. PEGINTERFERON ALFA-2B [Concomitant]
     Indication: HEPATITIS C
     Route: 058
     Dates: start: 20120403
  5. PREDNISOLONE [Concomitant]
     Route: 048
     Dates: start: 20120408
  6. RIBAVIRIN [Concomitant]
     Indication: HEPATITIS C
     Route: 048
     Dates: start: 20120403
  7. ALLEGRA [Concomitant]
     Route: 048
     Dates: start: 20120405
  8. ZANTAC [Concomitant]
     Route: 048

REACTIONS (1)
  - SKIN DISORDER [None]
